FAERS Safety Report 17654577 (Version 5)
Quarter: 2022Q2

REPORT INFORMATION
  Report Type: Spontaneous
  Country: CA (occurrence: CA)
  Receive Date: 20200410
  Receipt Date: 20220607
  Transmission Date: 20220721
  Serious: Yes (Hospitalization, Other)
  Sender: FDA-Public Use
  Company Number: CA-SAMSUNG BIOEPIS-SB-2020-11992

PATIENT
  Age: 49 Year
  Sex: Female
  Weight: 62 kg

DRUGS (7)
  1. INFLIXIMAB [Suspect]
     Active Substance: INFLIXIMAB
     Indication: Crohn^s disease
     Route: 042
  2. DESOXIMETASONE [Concomitant]
     Active Substance: DESOXIMETASONE
     Indication: Product used for unknown indication
     Dosage: INTRA-NASAL
     Route: 065
  3. DESOXIMETASONE [Concomitant]
     Active Substance: DESOXIMETASONE
     Dosage: INHALATION
     Route: 055
  4. METHOTREXATE [Concomitant]
     Active Substance: METHOTREXATE
     Indication: Product used for unknown indication
     Route: 065
  5. DIPHENHYDRAMINE [Concomitant]
     Active Substance: DIPHENHYDRAMINE
     Indication: Premedication
     Route: 048
  6. BUDESONIDE\FORMOTEROL FUMARATE DIHYDRATE [Concomitant]
     Active Substance: BUDESONIDE\FORMOTEROL FUMARATE DIHYDRATE
     Indication: Influenza
     Route: 055
  7. ALBUTEROL [Concomitant]
     Active Substance: ALBUTEROL
     Indication: Influenza
     Route: 055

REACTIONS (34)
  - Condition aggravated [Not Recovered/Not Resolved]
  - Constipation [Not Recovered/Not Resolved]
  - Cough [Not Recovered/Not Resolved]
  - Crohn^s disease [Not Recovered/Not Resolved]
  - Faeces discoloured [Not Recovered/Not Resolved]
  - Fatigue [Not Recovered/Not Resolved]
  - Hallucination [Recovered/Resolved]
  - Heart rate decreased [Not Recovered/Not Resolved]
  - Illness [Not Recovered/Not Resolved]
  - Infection [Not Recovered/Not Resolved]
  - Influenza [Not Recovered/Not Resolved]
  - Infusion site extravasation [Not Recovered/Not Resolved]
  - Nasal congestion [Not Recovered/Not Resolved]
  - Nasopharyngitis [Not Recovered/Not Resolved]
  - Malaise [Not Recovered/Not Resolved]
  - Oropharyngeal pain [Not Recovered/Not Resolved]
  - Pulmonary mass [Not Recovered/Not Resolved]
  - Pyrexia [Not Recovered/Not Resolved]
  - Secretion discharge [Not Recovered/Not Resolved]
  - Vomiting [Not Recovered/Not Resolved]
  - Weight increased [Not Recovered/Not Resolved]
  - Abdominal pain upper [Not Recovered/Not Resolved]
  - Asthenia [Not Recovered/Not Resolved]
  - Decreased appetite [Not Recovered/Not Resolved]
  - Dyspnoea [Not Recovered/Not Resolved]
  - Eczema [Not Recovered/Not Resolved]
  - Eye discharge [Recovered/Resolved]
  - Eye infection bacterial [Not Recovered/Not Resolved]
  - Mobility decreased [Not Recovered/Not Resolved]
  - Productive cough [Not Recovered/Not Resolved]
  - Skin bacterial infection [Not Recovered/Not Resolved]
  - Drug level increased [Not Recovered/Not Resolved]
  - Inappropriate schedule of product administration [Not Recovered/Not Resolved]
  - Off label use [Not Recovered/Not Resolved]
